FAERS Safety Report 21821709 (Version 3)
Quarter: 2024Q2

REPORT INFORMATION
  Report Type: Report from Study
  Country: GB (occurrence: GB)
  Receive Date: 20230105
  Receipt Date: 20240516
  Transmission Date: 20240716
  Serious: Yes (Death, Hospitalization, Other)
  Sender: FDA-Public Use
  Company Number: GB-CELLTRION INC.-2022GB017222

PATIENT

DRUGS (18)
  1. BEVACIZUMAB [Suspect]
     Active Substance: BEVACIZUMAB
     Indication: Hepatocellular carcinoma
     Dosage: 800 MG
     Route: 065
     Dates: start: 20220630
  2. ATEZOLIZUMAB [Suspect]
     Active Substance: ATEZOLIZUMAB
     Indication: Hepatocellular carcinoma
     Dosage: 1200 MG EVERY 3 WEEKS ON 30/JUN/2022 RECEIVED MOST RECENT DOSE OF ATEZOLIZUMAB 1200 MG PRIOR TO AE A
     Route: 041
     Dates: start: 20220630
  3. ALLOPURINOL [Concomitant]
     Active Substance: ALLOPURINOL
     Dosage: EVERY 1 DAY
  4. COCODAMOL [Concomitant]
     Active Substance: ACETAMINOPHEN\CODEINE PHOSPHATE
     Indication: Pain
     Dosage: UNK
     Dates: start: 20220807
  5. COCODAMOL [Concomitant]
     Active Substance: ACETAMINOPHEN\CODEINE PHOSPHATE
     Dosage: UNK
     Dates: start: 20220807
  6. CHOLESTYRAMINE [Concomitant]
     Active Substance: CHOLESTYRAMINE
     Indication: Pruritus
     Dosage: EVERY 0.5 DAY
     Dates: start: 20220809
  7. DOXAZOSIN [Concomitant]
     Active Substance: DOXAZOSIN MESYLATE
     Dosage: UNK
     Dates: start: 202207
  8. FERROUS FUMARATE [Concomitant]
     Active Substance: FERROUS FUMARATE
     Dosage: EVERY 0.5 DAY
  9. FEXOFENADINE [Concomitant]
     Active Substance: FEXOFENADINE HYDROCHLORIDE
     Indication: Pruritus
     Dosage: EVERY 1 DAY
     Dates: start: 20220810
  10. FLUCLOXACILLIN [Concomitant]
     Active Substance: FLUCLOXACILLIN
     Dosage: EVERY 1 DAY
     Dates: start: 202207
  11. FLUDROCORTISONE [Concomitant]
     Active Substance: FLUDROCORTISONE
     Dosage: EVERY 1 DAY
     Dates: start: 20220526
  12. FUROSEMIDE [Concomitant]
     Active Substance: FUROSEMIDE
     Dosage: EVERY 1 DAY
     Dates: start: 20220922, end: 20221005
  13. HALOPERIDOL [Concomitant]
     Active Substance: HALOPERIDOL
     Dosage: EVERY 1 DAY
     Dates: start: 20220809
  14. LEVOTHYROXINE [Concomitant]
     Active Substance: LEVOTHYROXINE\LEVOTHYROXINE SODIUM
     Dosage: EVERY 1 DAY
  15. HUMAN RED BLOOD CELL [Concomitant]
     Active Substance: HUMAN RED BLOOD CELL
     Indication: Anaemia
     Dosage: UNK
     Dates: start: 20220806
  16. POTASSIUM BICARBONATE\POTASSIUM CHLORIDE [Concomitant]
     Active Substance: POTASSIUM BICARBONATE\POTASSIUM CHLORIDE
     Indication: Adverse event
     Dosage: EVERY 0.33 DAY
     Dates: start: 20220707, end: 20220710
  17. DEXAMETHASONE [Concomitant]
     Active Substance: DEXAMETHASONE
     Dosage: EVERY 1 DAY
     Dates: start: 20220908
  18. HYDROMOL [EMULSIFYING WAX;PARAFFIN SOFT;PARAFFIN, LIQUID] [Concomitant]

REACTIONS (10)
  - Death [Fatal]
  - Oedema peripheral [Recovering/Resolving]
  - Decreased appetite [Not Recovered/Not Resolved]
  - Constipation [Recovered/Resolved]
  - Fatigue [Not Recovered/Not Resolved]
  - Fatigue [Recovering/Resolving]
  - Pyrexia [Recovered/Resolved]
  - Dysphonia [Recovering/Resolving]
  - Pain [Recovered/Resolved]
  - Intentional product use issue [Unknown]

NARRATIVE: CASE EVENT DATE: 20220801
